FAERS Safety Report 14854522 (Version 3)
Quarter: 2019Q3

REPORT INFORMATION
  Report Type: Spontaneous
  Country: US (occurrence: US)
  Receive Date: 20180507
  Receipt Date: 20190919
  Transmission Date: 20191004
  Serious: Yes (Other)
  Sender: FDA-Public Use
  Company Number: US-SHIRE-US201817259

PATIENT
  Sex: Male
  Weight: 127 kg

DRUGS (4)
  1. VYVANSE [Suspect]
     Active Substance: LISDEXAMFETAMINE DIMESYLATE
     Indication: BEHAVIOUR DISORDER
  2. ATIVAN [Concomitant]
     Active Substance: LORAZEPAM
     Indication: PRODUCT USED FOR UNKNOWN INDICATION
  3. LEXAPRO [Concomitant]
     Active Substance: ESCITALOPRAM OXALATE
     Indication: PRODUCT USED FOR UNKNOWN INDICATION
  4. VYVANSE [Suspect]
     Active Substance: LISDEXAMFETAMINE DIMESYLATE
     Indication: ANXIETY
     Dosage: UNK
     Route: 065
     Dates: start: 2018

REACTIONS (14)
  - Dizziness [Unknown]
  - Dermatillomania [Unknown]
  - Weight decreased [Recovered/Resolved]
  - Eating disorder [Recovered/Resolved]
  - Diplopia [Recovered/Resolved]
  - Hunger [Recovered/Resolved]
  - Hyperthyroidism [Recovered/Resolved]
  - Inappropriate schedule of product administration [Unknown]
  - Muscular weakness [Unknown]
  - Dyskinesia [Unknown]
  - Drug withdrawal syndrome [Unknown]
  - Restlessness [Recovered/Resolved]
  - Tremor [Recovered/Resolved]
  - Fatigue [Recovered/Resolved]

NARRATIVE: CASE EVENT DATE: 2018
